FAERS Safety Report 19927029 (Version 1)
Quarter: 2021Q4

REPORT INFORMATION
  Report Type: Spontaneous
  Country: US (occurrence: US)
  Receive Date: 20211007
  Receipt Date: 20211007
  Transmission Date: 20220304
  Serious: No
  Sender: FDA-Public Use
  Company Number: US-INDIVIOR US-INDV-129811-2021

PATIENT
  Age: 34 Year
  Sex: Female

DRUGS (4)
  1. SUBOXONE [Suspect]
     Active Substance: BUPRENORPHINE HYDROCHLORIDE\NALOXONE HYDROCHLORIDE
     Indication: Drug dependence
     Dosage: 12 MILLIGRAM, QD
     Route: 060
     Dates: start: 20210411, end: 202104
  2. SUBOXONE [Suspect]
     Active Substance: BUPRENORPHINE HYDROCHLORIDE\NALOXONE HYDROCHLORIDE
     Dosage: UNK (LOWERING HERSELF OFF SUBOXONE)
     Route: 060
     Dates: start: 202104, end: 20210418
  3. HYDROXYZINE [Concomitant]
     Active Substance: HYDROXYZINE HYDROCHLORIDE
     Indication: Anxiety
     Dosage: UNK, HS
     Route: 065
     Dates: start: 20210411
  4. CLONIDINE [Concomitant]
     Active Substance: CLONIDINE
     Indication: Drug withdrawal syndrome
     Dosage: UNK
     Route: 065
     Dates: start: 20210411

REACTIONS (1)
  - Inappropriate schedule of product discontinuation [Recovered/Resolved]

NARRATIVE: CASE EVENT DATE: 20210401
